FAERS Safety Report 6461094-5 (Version None)
Quarter: 2009Q4

REPORT INFORMATION
  Report Type: 
  Country: None (occurrence: None)
  Receive Date: 20091130
  Receipt Date: 20091116
  Transmission Date: 20100525
  Serious: Yes (Hospitalization)
  Sender: FDA-Public Use
  Company Number: B0608169A

PATIENT
  Age: 57 Year
  Sex: Male

DRUGS (1)
  1. CEFTAZIDIME [Suspect]
     Indication: PERITONITIS
     Dosage: 3G TWICE PER DAY
     Route: 042

REACTIONS (1)
  - HAEMATURIA [None]
